FAERS Safety Report 19366443 (Version 2)
Quarter: 2022Q3

REPORT INFORMATION
  Report Type: Spontaneous
  Country: JP (occurrence: JP)
  Receive Date: 20210602
  Receipt Date: 20220906
  Transmission Date: 20221027
  Serious: Yes (Death, Disabling)
  Sender: FDA-Public Use
  Company Number: JP-DSJP-DSJ-2021-110487

PATIENT
  Age: 68 Year
  Sex: Male
  Weight: 52.7 kg

DRUGS (2)
  1. ENHERTU [Suspect]
     Active Substance: FAM-TRASTUZUMAB DERUXTECAN-NXKI
     Indication: HER2 positive gastric cancer
     Dosage: 5.4 MG/KG, ONCE EVERY 3 WK
     Route: 041
     Dates: start: 20210215, end: 20210215
  2. ENHERTU [Suspect]
     Active Substance: FAM-TRASTUZUMAB DERUXTECAN-NXKI
     Dosage: 5.4 MG/KG, ONCE EVERY 3 WK
     Route: 041
     Dates: start: 20210308, end: 20210308

REACTIONS (5)
  - Amylase increased [Unknown]
  - Hepatic function abnormal [Unknown]
  - Disease progression [Fatal]
  - Pneumonia bacterial [Unknown]
  - Underdose [Unknown]

NARRATIVE: CASE EVENT DATE: 20210101
